FAERS Safety Report 4686644-0 (Version None)
Quarter: 2005Q2

REPORT INFORMATION
  Report Type: 
  Country: None (occurrence: None)
  Receive Date: 20050606
  Receipt Date: 20050519
  Transmission Date: 20051028
  Serious: Yes (Hospitalization)
  Sender: FDA-Public Use
  Company Number: FR_050506463

PATIENT
  Age: 90 Year
  Sex: Female

DRUGS (4)
  1. FORTEO [Suspect]
     Indication: OSTEOPOROSIS
     Dosage: 20 UG DAY
     Dates: start: 20050502, end: 20050519
  2. CORDARONE [Concomitant]
  3. MEDIATENSYL (URAPIDIL) [Concomitant]
  4. MORPHINE SULFATE [Concomitant]

REACTIONS (2)
  - BLOOD PRESSURE DECREASED [None]
  - MALAISE [None]
